FAERS Safety Report 24405661 (Version 3)
Quarter: 2024Q4

REPORT INFORMATION
  Report Type: Spontaneous
  Country: CZ (occurrence: CZ)
  Receive Date: 20241007
  Receipt Date: 20241112
  Transmission Date: 20250115
  Serious: Yes (Other)
  Sender: ALIMERA
  Company Number: CZ-ALIMERA SCIENCES INC.-CZ-A16013-24-000588

PATIENT
  Age: 34 Year
  Sex: Female

DRUGS (2)
  1. ILUVIEN [Suspect]
     Active Substance: FLUOCINOLONE ACETONIDE
     Indication: Uveitis
     Dosage: 0.25 MICROGRAM, QD -LEFT EYE
     Route: 031
     Dates: start: 20231004
  2. ILUVIEN [Suspect]
     Active Substance: FLUOCINOLONE ACETONIDE
     Dosage: 0.25 MICROGRAM, QD -RIGHT EYE
     Route: 031
     Dates: start: 20240123

REACTIONS (1)
  - Hypotony of eye [Recovered/Resolved]

NARRATIVE: CASE EVENT DATE: 20240124
